FAERS Safety Report 11044787 (Version 1)
Quarter: 2015Q2

REPORT INFORMATION
  Report Type: Spontaneous
  Country: US (occurrence: US)
  Receive Date: 20150417
  Receipt Date: 20150417
  Transmission Date: 20150821
  Serious: No
  Sender: FDA-Public Use
  Company Number: US-ASTRAZENECA-2015SE33177

PATIENT
  Sex: Female
  Weight: 93 kg

DRUGS (1)
  1. BYDUREON [Suspect]
     Active Substance: EXENATIDE
     Indication: TYPE 2 DIABETES MELLITUS
     Dosage: 2 MG 4 COUNT, ONCE A WEEK
     Route: 058
     Dates: start: 20150405

REACTIONS (4)
  - Injection site haemorrhage [Unknown]
  - Panic reaction [Unknown]
  - Injection site reaction [Unknown]
  - Injection site nodule [Unknown]
